FAERS Safety Report 5657092-1 (Version None)
Quarter: 2008Q1

REPORT INFORMATION
  Report Type: 
  Country: None (occurrence: None)
  Receive Date: 20080310
  Receipt Date: 20080226
  Transmission Date: 20080703
  Serious: Yes (Hospitalization, Other)
  Sender: FDA-Public Use
  Company Number: FR-ROCHE-549684

PATIENT
  Age: 44 Year
  Sex: Male

DRUGS (6)
  1. INTERFERON ALFA [Suspect]
     Indication: HEPATITIS C
     Dosage: MONOTHERAPY.
     Route: 065
     Dates: start: 19940101
  2. INTERFERON ALFA [Suspect]
     Dosage: SECOND LINE OF TREATMENT WITH THE ADDITION OF RIBAVIRIN TO INTERFERON ALFA.
     Route: 065
     Dates: start: 19970101
  3. INTERFERON ALFA [Suspect]
     Dosage: MONOTHERAPY.
     Route: 065
     Dates: start: 19980101
  4. INTERFERON ALFA [Suspect]
     Dosage: ROUTE REPORTED AS SUBCUTANEOUS.
     Route: 065
     Dates: start: 19991001
  5. RIBAVIRIN [Suspect]
     Indication: HEPATITIS C
     Route: 065
     Dates: start: 19970101
  6. PEG-INTERFERON ALFA NOS [Suspect]
     Indication: HEPATITIS C
     Route: 065
     Dates: start: 20000901

REACTIONS (6)
  - CRYOGLOBULINAEMIA [None]
  - HYPERTENSION [None]
  - NEUROPATHY PERIPHERAL [None]
  - RENAL FAILURE [None]
  - VASCULITIS [None]
  - VASCULITIS NECROTISING [None]
